FAERS Safety Report 17647771 (Version 1)
Quarter: 2020Q2

REPORT INFORMATION
  Report Type: Spontaneous
  Country: US (occurrence: US)
  Receive Date: 20200409
  Receipt Date: 20200409
  Transmission Date: 20200713
  Serious: Yes (Death)
  Sender: FDA-Public Use
  Company Number: US-ADAREPHARM-2020-US-000033

PATIENT
  Age: 0 Year
  Sex: Female

DRUGS (1)
  1. PROPRANOLOL [Suspect]
     Active Substance: PROPRANOLOL HYDROCHLORIDE
     Indication: ELECTROCARDIOGRAM QT PROLONGED

REACTIONS (3)
  - Hypoglycaemia [Not Recovered/Not Resolved]
  - Hypoglycaemic coma [Fatal]
  - Drug ineffective for unapproved indication [Not Recovered/Not Resolved]
